FAERS Safety Report 8722460 (Version 3)
Quarter: 2012Q4

REPORT INFORMATION
  Report Type: 
  Country: JP (occurrence: JP)
  Receive Date: 20120814
  Receipt Date: 20121107
  Transmission Date: 20130627
  Serious: Yes (Death, Life-Threatening, Hospitalization)
  Sender: FDA-Public Use
  Company Number: JP-ELI_LILLY_AND_COMPANY-JP201208002909

PATIENT
  Age: 65 Year
  Sex: Male
  Weight: 57 kg

DRUGS (7)
  1. ALIMTA [Suspect]
     Indication: LUNG ADENOCARCINOMA STAGE IV
     Dosage: 600 mg, UNK
     Route: 042
     Dates: start: 20120705, end: 20120705
  2. CARBOPLATIN [Concomitant]
     Indication: LUNG ADENOCARCINOMA STAGE IV
     Dosage: 270 mg, UNK
     Route: 042
     Dates: start: 20120705, end: 20120705
  3. AVASTIN                            /01555201/ [Concomitant]
     Indication: LUNG ADENOCARCINOMA STAGE IV
     Dosage: 426 mg, UNK
     Route: 042
     Dates: start: 20120705, end: 20120705
  4. DECADRON                                /CAN/ [Concomitant]
     Dosage: 6.6 mg, UNK
     Route: 042
     Dates: start: 20120705
  5. GRANISETRON [Concomitant]
     Dosage: 3 g, UNK
     Route: 042
     Dates: start: 20120705
  6. MASBLON H [Concomitant]
     Dosage: 1 mg, UNK
     Route: 030
     Dates: start: 20120703
  7. PANVITAN [Concomitant]
     Dosage: 1 g, UNK
     Route: 048
     Dates: start: 20120703

REACTIONS (9)
  - Hypovolaemic shock [Fatal]
  - Anaemia [Fatal]
  - Hepatobiliary disease [Not Recovered/Not Resolved]
  - Renal failure acute [Not Recovered/Not Resolved]
  - Febrile neutropenia [Not Recovered/Not Resolved]
  - Platelet count decreased [Not Recovered/Not Resolved]
  - Pneumonia [Not Recovered/Not Resolved]
  - Rash [Not Recovered/Not Resolved]
  - Off label use [Recovered/Resolved]
